FAERS Safety Report 24342883 (Version 1)
Quarter: 2024Q3

REPORT INFORMATION
  Report Type: Spontaneous
  Country: US (occurrence: US)
  Receive Date: 20240920
  Receipt Date: 20240920
  Transmission Date: 20241016
  Serious: No
  Sender: TEVA
  Company Number: US-TEVA-VS-3241466

PATIENT
  Age: 57 Year
  Sex: Female

DRUGS (1)
  1. AJOVY [Suspect]
     Active Substance: FREMANEZUMAB-VFRM
     Indication: Product used for unknown indication
     Dosage: FIRST DISPENSED AJOVY TO THE PATIENT ON 28JUN2024
     Route: 065
     Dates: start: 2024

REACTIONS (3)
  - COVID-19 [Recovered/Resolved]
  - Respiratory disorder [Unknown]
  - Cough [Unknown]

NARRATIVE: CASE EVENT DATE: 20240101
